FAERS Safety Report 7979079-6 (Version None)
Quarter: 2011Q4

REPORT INFORMATION
  Report Type: 
  Country: None (occurrence: None)
  Receive Date: 20111205
  Receipt Date: 20111121
  Transmission Date: 20120403
  Serious: Yes (Death, Hospitalization, Other)
  Sender: FDA-Public Use
  Company Number: 2011MA016711

PATIENT
  Age: 60 Year
  Sex: Male

DRUGS (48)
  1. ALBUTEROL [Concomitant]
  2. FUROSEMIDE [Concomitant]
  3. INSULIN [Concomitant]
  4. ROCEPHIN [Concomitant]
  5. AMBIEN [Concomitant]
  6. NORVASC [Concomitant]
  7. GLUCOPHAGE [Concomitant]
  8. METFORMIN HCL [Concomitant]
  9. SIMVASTATIN [Concomitant]
  10. LORTAB [Concomitant]
  11. LEVAQUIN [Concomitant]
  12. DIGOXIN [Suspect]
     Indication: CARDIOMYOPATHY
     Dosage: 0.25 MG;QD;PO
     Route: 048
     Dates: start: 20020926, end: 20080215
  13. DIGOXIN [Suspect]
     Indication: CARDIAC FAILURE CONGESTIVE
     Dosage: 0.25 MG;QD;PO
     Route: 048
     Dates: start: 20020926, end: 20080215
  14. AMITRIPTYLINE HCL [Concomitant]
  15. HYDROCODONE BITARTRATE AND ACETAMINOPHEN [Concomitant]
  16. ZAROXOLYN [Concomitant]
  17. VIOXX [Concomitant]
  18. NITROGLYCERIN [Concomitant]
  19. FERROUS SULFATE TAB [Concomitant]
  20. IV FLUIDS [Concomitant]
  21. COREG [Concomitant]
  22. HUMALOG [Concomitant]
  23. ZESTRIL [Concomitant]
  24. POTASSIUM CHLORIDE [Concomitant]
  25. TEMAZEPAM [Concomitant]
  26. COUMADIN [Concomitant]
  27. AMBIEN [Concomitant]
  28. RESTORIL [Concomitant]
  29. CADUET [Concomitant]
  30. ACTOS [Concomitant]
  31. OXYBUTYNIN [Concomitant]
  32. TRAMADOL HCL [Concomitant]
  33. ALLOPURINOL [Concomitant]
  34. AVANDIA [Concomitant]
  35. LIPITOR [Concomitant]
  36. PROCRIT [Concomitant]
  37. NEURONTIN [Concomitant]
  38. NEBULIZER [Concomitant]
  39. ADVAIR DISKUS 100/50 [Concomitant]
  40. CADUET [Concomitant]
  41. IBUPROFEN [Concomitant]
  42. ZETIA [Concomitant]
  43. AUGMENTIN [Concomitant]
  44. LANTUS [Concomitant]
  45. RELION/NOVO [Concomitant]
  46. TRICOR [Concomitant]
  47. SPIRONOLACTONE [Concomitant]
  48. IBUPROFEN [Concomitant]

REACTIONS (29)
  - DYSPNOEA [None]
  - ANAEMIA OF CHRONIC DISEASE [None]
  - EJECTION FRACTION DECREASED [None]
  - DIARRHOEA [None]
  - OBESITY [None]
  - ARTHRITIS [None]
  - OSTEOARTHRITIS [None]
  - IRON DEFICIENCY ANAEMIA [None]
  - RENAL FAILURE [None]
  - LABORATORY TEST INTERFERENCE [None]
  - HYPERTENSIVE HEART DISEASE [None]
  - ASTHMA [None]
  - MYOSITIS [None]
  - HYPOGLYCAEMIA [None]
  - RESTLESS LEGS SYNDROME [None]
  - BLOOD SODIUM DECREASED [None]
  - DIZZINESS [None]
  - CARDIO-RESPIRATORY ARREST [None]
  - ATRIAL FIBRILLATION [None]
  - BLOOD TRIGLYCERIDES INCREASED [None]
  - PALPITATIONS [None]
  - PNEUMONIA [None]
  - BRADYCARDIA [None]
  - GLYCOSYLATED HAEMOGLOBIN INCREASED [None]
  - INJURY [None]
  - SLEEP APNOEA SYNDROME [None]
  - GOUTY ARTHRITIS [None]
  - DIABETIC NEUROPATHY [None]
  - HYPERHIDROSIS [None]
